FAERS Safety Report 5026682-1 (Version None)
Quarter: 2006Q2

REPORT INFORMATION
  Report Type: 
  Country: None (occurrence: None)
  Receive Date: 20060615
  Receipt Date: 20060608
  Transmission Date: 20061013
  Serious: Yes (Hospitalization)
  Sender: FDA-Public Use
  Company Number: KR-JNJFOC-20060602548

PATIENT
  Age: 65 Year
  Sex: Male

DRUGS (2)
  1. SPORANOX [Suspect]
     Indication: FUNGAL INFECTION
     Route: 048
     Dates: start: 20060603, end: 20060605
  2. NIFEDIPINE [Suspect]
     Indication: HYPERTENSION
     Route: 065

REACTIONS (1)
  - DYSPNOEA [None]
